FAERS Safety Report 8243818-X (Version None)
Quarter: 2012Q1

REPORT INFORMATION
  Report Type: 
  Country: None (occurrence: None)
  Receive Date: 20120316
  Receipt Date: 20100823
  Transmission Date: 20120608
  Serious: Yes (Other)
  Sender: FDA-Public Use
  Company Number: PHHY2010US56444

PATIENT
  Age: 24 Year
  Sex: Male

DRUGS (1)
  1. EXTAVIA [Suspect]
     Dosage: 1.00 CC QOD, SUBCUTANEOUS
     Route: 058

REACTIONS (1)
  - INFLUENZA LIKE ILLNESS [None]
